FAERS Safety Report 11399022 (Version 2)
Quarter: 2015Q3

REPORT INFORMATION
  Report Type: Spontaneous
  Country: FR (occurrence: FR)
  Receive Date: 20150820
  Receipt Date: 20150826
  Transmission Date: 20151125
  Serious: Yes (Other)
  Sender: FDA-Public Use
  Company Number: FR-PFIZER INC-2015278149

PATIENT
  Age: 66 Year
  Sex: Female

DRUGS (6)
  1. KENZEN [Suspect]
     Active Substance: CANDESARTAN
     Dosage: UNK
     Route: 048
     Dates: start: 20150131
  2. BISOPROLOL FUMARATE. [Suspect]
     Active Substance: BISOPROLOL FUMARATE
     Dosage: UNK
     Route: 048
     Dates: start: 20150131
  3. ENDOXAN /00021101/ [Suspect]
     Active Substance: CYCLOPHOSPHAMIDE
     Dosage: UNK
     Route: 048
     Dates: start: 201408
  4. PANTOPRAZOLE [Suspect]
     Active Substance: PANTOPRAZOLE SODIUM
     Dosage: UNK
     Route: 048
     Dates: start: 201408
  5. FASLODEX [Suspect]
     Active Substance: FULVESTRANT
     Dosage: UNK, (250MG/5ML)
     Route: 030
     Dates: start: 201408
  6. XELODA [Suspect]
     Active Substance: CAPECITABINE
     Dosage: UNK
     Route: 048
     Dates: start: 201408

REACTIONS (2)
  - Chronic cutaneous lupus erythematosus [Not Recovered/Not Resolved]
  - Cardiac failure [Not Recovered/Not Resolved]

NARRATIVE: CASE EVENT DATE: 20150310
